FAERS Safety Report 5051882-4 (Version None)
Quarter: 2006Q3

REPORT INFORMATION
  Report Type: 
  Country: None (occurrence: None)
  Receive Date: 20060714
  Receipt Date: 20060228
  Transmission Date: 20061208
  Serious: Yes (Hospitalization)
  Sender: FDA-Public Use
  Company Number: JP-BOEHRINGER INGELHEIM PHARMACEUTICALS, INC.-2006-BP-02755NB

PATIENT
  Sex: Male
  Weight: 51 kg

DRUGS (10)
  1. SPIRIVA [Suspect]
     Indication: EMPHYSEMA
     Route: 055
     Dates: start: 20051214, end: 20060103
  2. SPIROPENT [Concomitant]
     Route: 048
     Dates: start: 19900101
  3. UNIPHYL [Concomitant]
     Route: 048
     Dates: start: 19900101
  4. SINGULAIR [Concomitant]
     Route: 048
     Dates: start: 19900101
  5. FLUTIDE [Concomitant]
     Route: 055
     Dates: start: 19900101
  6. PROCATEROL HCL [Concomitant]
     Route: 055
     Dates: start: 19900101
  7. PROCATEROL HCL [Concomitant]
     Route: 055
     Dates: start: 19900101
  8. INTAL [Concomitant]
     Route: 055
     Dates: start: 19900101
  9. PENMALIN [Concomitant]
     Route: 042
     Dates: start: 20051212, end: 20051231
  10. ZITHROMAC [Concomitant]
     Route: 048
     Dates: start: 20051230, end: 20051231

REACTIONS (2)
  - NEUTROPENIA [None]
  - PLATELET COUNT DECREASED [None]
